FAERS Safety Report 7020762-7 (Version None)
Quarter: 2010Q3

REPORT INFORMATION
  Report Type: 
  Country: None (occurrence: None)
  Receive Date: 20100929
  Receipt Date: 20100921
  Transmission Date: 20110219
  Serious: Yes (Hospitalization)
  Sender: FDA-Public Use
  Company Number: IT-JNJFOC-20100906794

PATIENT
  Age: 69 Year
  Sex: Female

DRUGS (9)
  1. LEVOFLOXACIN [Suspect]
     Indication: ERYSIPELAS
     Route: 048
  2. LASIX [Concomitant]
     Route: 065
  3. AZATHIOPRINE [Concomitant]
     Route: 065
  4. EUTIROX [Concomitant]
     Route: 065
  5. PREDNISONE [Concomitant]
     Route: 065
  6. LACTULOSE [Concomitant]
     Route: 065
  7. INDERAL [Concomitant]
     Route: 065
  8. BROMAZEPAM [Concomitant]
     Route: 065
  9. KANRENOL [Concomitant]
     Route: 065

REACTIONS (2)
  - GRAND MAL CONVULSION [None]
  - PETIT MAL EPILEPSY [None]
